FAERS Safety Report 17001264 (Version 2)
Quarter: 2019Q4

REPORT INFORMATION
  Report Type: Spontaneous
  Country: CN (occurrence: CN)
  Receive Date: 20191106
  Receipt Date: 20191112
  Transmission Date: 20200122
  Serious: Yes (Hospitalization)
  Sender: FDA-Public Use
  Company Number: CN-ASTRAZENECA-2019SF56124

PATIENT
  Sex: Female
  Weight: 62.5 kg

DRUGS (3)
  1. SINGULAIR [Concomitant]
     Active Substance: MONTELUKAST SODIUM
     Indication: FEAR
     Dosage: 10MG, QD, BEFORE SLEEP, ORALLY
  2. SYMBICORT [Suspect]
     Active Substance: BUDESONIDE\FORMOTEROL FUMARATE DIHYDRATE
     Indication: ASTHMA
     Dosage: 160/4.5UG, INHALATION ONCE IN THE MORNING AND ONCE IN THE EVENING
     Route: 055
  3. BRICANYL [Concomitant]
     Active Substance: TERBUTALINE SULFATE
     Indication: ASTHMA

REACTIONS (4)
  - Device issue [Unknown]
  - Malaise [Unknown]
  - Cough [Recovering/Resolving]
  - Throat irritation [Unknown]
